FAERS Safety Report 8149123-4 (Version None)
Quarter: 2012Q1

REPORT INFORMATION
  Report Type: 
  Country: None (occurrence: None)
  Receive Date: 20120218
  Receipt Date: 20111020
  Transmission Date: 20120608
  Serious: No
  Sender: FDA-Public Use
  Company Number: US-ALLERGAN-1009041US

PATIENT
  Age: 69 Year
  Sex: Female
  Weight: 57.596 kg

DRUGS (6)
  1. BOTOX COSMETIC [Suspect]
     Indication: SKIN WRINKLING
     Dosage: 50 UNITS, SINGLE
     Route: 030
     Dates: start: 20100421, end: 20100421
  2. BOTOX COSMETIC [Suspect]
     Dosage: UNK
     Route: 030
  3. PANTOPRAZOLE [Concomitant]
     Indication: GASTROOESOPHAGEAL REFLUX DISEASE
     Dosage: 40 MG, BID
     Route: 048
  4. ALPRAZOLAM [Concomitant]
     Indication: ANXIETY
     Dosage: 0.5 NG, QD
     Route: 048
  5. MECLIZINE [Concomitant]
     Indication: VERTIGO
     Dosage: UNK
     Route: 048
  6. MOBIC [Concomitant]
     Indication: ARTHRITIS
     Dosage: 7.5 MG, QD
     Route: 048

REACTIONS (5)
  - HAEMATOMA [None]
  - EYE SWELLING [None]
  - SKIN WRINKLING [None]
  - SKIN DISORDER [None]
  - FACE OEDEMA [None]
